FAERS Safety Report 6635227-1 (Version None)
Quarter: 2010Q1

REPORT INFORMATION
  Report Type: 
  Country: None (occurrence: None)
  Receive Date: 20100315
  Receipt Date: 20100305
  Transmission Date: 20100710
  Serious: Yes (Disabling, Congenital Anomaly)
  Sender: FDA-Public Use
  Company Number: GXKR2010GB02681

PATIENT

DRUGS (1)
  1. CETIRIZINE (NGX) [Suspect]
     Route: 064

REACTIONS (2)
  - DEAFNESS [None]
  - DRUG EXPOSURE DURING PREGNANCY [None]
